FAERS Safety Report 6833872-1 (Version None)
Quarter: 2010Q3

REPORT INFORMATION
  Report Type: 
  Country: None (occurrence: None)
  Receive Date: 20100712
  Receipt Date: 20070403
  Transmission Date: 20110219
  Serious: No
  Sender: FDA-Public Use
  Company Number: US-PFIZER INC-2007028072

PATIENT
  Sex: Female
  Weight: 43.54 kg

DRUGS (7)
  1. CHANTIX [Suspect]
     Indication: DEPRESSION
     Dates: start: 20070301
  2. ALL OTHER THERAPEUTIC PRODUCTS [Concomitant]
     Indication: COLITIS ULCERATIVE
  3. ALL OTHER THERAPEUTIC PRODUCTS [Concomitant]
     Indication: DIARRHOEA
  4. ALL OTHER THERAPEUTIC PRODUCTS [Concomitant]
     Indication: MALIGNANT MELANOMA
  5. XANAX [Concomitant]
     Indication: ANXIETY
  6. XANAX [Concomitant]
     Indication: AGORAPHOBIA
  7. XANAX [Concomitant]
     Indication: PANIC DISORDER

REACTIONS (2)
  - NAUSEA [None]
  - VOMITING [None]
